FAERS Safety Report 7529916-4 (Version None)
Quarter: 2011Q2

REPORT INFORMATION
  Report Type: 
  Country: None (occurrence: None)
  Receive Date: 20110607
  Receipt Date: 20110602
  Transmission Date: 20111010
  Serious: Yes (Other)
  Sender: FDA-Public Use
  Company Number: PT-PFIZER INC-2011097689

PATIENT
  Age: 77 Year
  Sex: Male

DRUGS (2)
  1. MEROPENEM [Concomitant]
     Indication: EVIDENCE BASED TREATMENT
     Dosage: UNK
     Route: 042
     Dates: start: 20110413, end: 20110417
  2. LINEZOLID [Suspect]
     Indication: EVIDENCE BASED TREATMENT
     Dosage: 600 MG, 2X/DAY
     Route: 042
     Dates: start: 20110413, end: 20110417

REACTIONS (3)
  - CONDITION AGGRAVATED [None]
  - PATHOGEN RESISTANCE [None]
  - INFECTION [None]
